FAERS Safety Report 11071310 (Version 22)
Quarter: 2017Q1

REPORT INFORMATION
  Report Type: Spontaneous
  Country: US (occurrence: US)
  Receive Date: 20150428
  Receipt Date: 20170117
  Transmission Date: 20170428
  Serious: Yes (Hospitalization, Other)
  Sender: FDA-Public Use
  Company Number: US-GLAXOSMITHKLINE-US2015GSK056152

PATIENT
  Age: 63 Year
  Sex: Female

DRUGS (24)
  1. FLOLAN [Suspect]
     Active Substance: EPOPROSTENOL SODIUM
     Dosage: 12 NG/KG/MIN, CO
  2. FLOLAN [Suspect]
     Active Substance: EPOPROSTENOL SODIUM
     Dosage: 20 NG/KG/MIN CONTINUOUSLY
  3. FLOLAN [Suspect]
     Active Substance: EPOPROSTENOL SODIUM
     Dosage: UNK
  4. FLOLAN [Suspect]
     Active Substance: EPOPROSTENOL SODIUM
     Indication: PULMONARY HYPERTENSION
     Dosage: 5 NG/KG/MIN (CONCENTRATION 15,000 NG/ML, PUMP RATE 53 ML/DAY, VIAL STRENGTH 1.5 MG), CO
     Route: 042
     Dates: start: 20150417
  5. FLOLAN [Suspect]
     Active Substance: EPOPROSTENOL SODIUM
     Dosage: 20 NG/KG/MIN, CO
     Dates: start: 20150417
  6. FLOLAN [Suspect]
     Active Substance: EPOPROSTENOL SODIUM
     Dosage: 20 NG/KG/MIN (CONCENTRATION 45,000 NG/ML, PUMP RATE 71 ML/DAY, VIAL STRENGTH 1.5 MG), CO
     Route: 042
     Dates: start: 20150417
  7. FLOLAN [Suspect]
     Active Substance: EPOPROSTENOL SODIUM
     Dosage: UNK
  8. FLOLAN [Suspect]
     Active Substance: EPOPROSTENOL SODIUM
     Dosage: 18 NG/KG/MIN (CONCENTRATION 45,000 NG/ML, PUMP RATE 53 ML/DAY, VIAL STRENGTH 1.5 MG), CO
  9. FLOLAN [Suspect]
     Active Substance: EPOPROSTENOL SODIUM
     Dosage: 20 NG/KG/MIN (CONCENTRATION 45,000 NG/ML, PUMP RATE 53 ML/DAY, VIAL STRENGTH 1.5 MG), CO
  10. FLOLAN [Suspect]
     Active Substance: EPOPROSTENOL SODIUM
     Dosage: 21 NG/KG/MIN (CONCENTRATION 45,000/60 NG/ML, PUMP RATE 45000/60 ML/DAY, VIAL STRENGTH 1.5 MG), CO
     Route: 042
  11. FLOLAN [Suspect]
     Active Substance: EPOPROSTENOL SODIUM
     Dosage: 21 NG/KG/MIN (CONCENTRATON 45,000 NG/ML, PUMP RATE 60 ML/DAY, VIAL STRENGTH 1.5 MG/ML) CO
  12. FLOLAN [Suspect]
     Active Substance: EPOPROSTENOL SODIUM
     Dosage: UNK, CO
  13. PREDNISONE. [Suspect]
     Active Substance: PREDNISONE
     Indication: PRODUCT USED FOR UNKNOWN INDICATION
     Dosage: UNK, U
  14. FLOLAN [Suspect]
     Active Substance: EPOPROSTENOL SODIUM
     Dosage: 21 NG/KG/MIN, CO
     Route: 042
     Dates: start: 20150417
  15. FLOLAN [Suspect]
     Active Substance: EPOPROSTENOL SODIUM
     Dosage: 15 DF, CO
  16. FLOLAN [Suspect]
     Active Substance: EPOPROSTENOL SODIUM
     Dosage: 18 NG/KG/MIN
  17. FLOLAN [Suspect]
     Active Substance: EPOPROSTENOL SODIUM
     Dosage: 21 NG/KG/MIN (CONCENTRATION 45,000 NG/ML, PUMP RATE 60 ML/DAY, 1.5 MG VIAL STRENGTH, CO
     Route: 042
  18. IBUPROFEN. [Suspect]
     Active Substance: IBUPROFEN
     Indication: HEADACHE
     Dosage: UNK, U
     Route: 065
     Dates: start: 201504
  19. OPSUMIT [Concomitant]
     Active Substance: MACITENTAN
  20. FLOLAN [Suspect]
     Active Substance: EPOPROSTENOL SODIUM
     Dosage: 15 DF, CO
  21. FLOLAN [Suspect]
     Active Substance: EPOPROSTENOL SODIUM
     Dosage: 15 NG/KG/MIN, CO
     Route: 042
  22. FLOLAN [Suspect]
     Active Substance: EPOPROSTENOL SODIUM
     Indication: PULMONARY HYPERTENSION
     Dosage: UNK
  23. FLOLAN [Suspect]
     Active Substance: EPOPROSTENOL SODIUM
     Dosage: UNK
  24. ADEMPAS [Concomitant]
     Active Substance: RIOCIGUAT

REACTIONS (26)
  - Endoscopy [Unknown]
  - Internal haemorrhage [Unknown]
  - Gastric disorder [Unknown]
  - Vomiting [Unknown]
  - Infusion site pruritus [Unknown]
  - Infusion site rash [Unknown]
  - Liver transplant rejection [Unknown]
  - Nausea [Unknown]
  - Skin swelling [Unknown]
  - Erythema [Unknown]
  - Urinary tract infection [Unknown]
  - Dyspnoea [Unknown]
  - Back pain [Unknown]
  - Pneumonia [Unknown]
  - Headache [Not Recovered/Not Resolved]
  - Skin burning sensation [Unknown]
  - Pruritus [Unknown]
  - Hospitalisation [Not Recovered/Not Resolved]
  - Liver transplant [Unknown]
  - Abdominal pain [Unknown]
  - Drug ineffective [Unknown]
  - Pain in jaw [Not Recovered/Not Resolved]
  - Infusion site urticaria [Unknown]
  - Muscle spasms [Unknown]
  - Infusion site erythema [Unknown]
  - Skin reaction [Unknown]

NARRATIVE: CASE EVENT DATE: 201504
